FAERS Safety Report 21247076 (Version 1)
Quarter: 2022Q3

REPORT INFORMATION
  Report Type: Spontaneous
  Country: US (occurrence: None)
  Receive Date: 20220823
  Receipt Date: 20220823
  Transmission Date: 20221026
  Serious: No
  Sender: FDA-Public Use
  Company Number: None

PATIENT
  Sex: Female

DRUGS (2)
  1. DUPIXENT [Suspect]
     Active Substance: DUPILUMAB
     Indication: Dermatitis atopic
     Dosage: 600 MG ON DAY 1, THEN 300 MG EVERY OTHER WEEK. ?
     Route: 058
     Dates: start: 20220817
  2. DUPIXENT [Suspect]
     Active Substance: DUPILUMAB
     Dosage: FREQUENCY : EVERY OTHER WEEK;?
     Route: 058

REACTIONS (2)
  - Device malfunction [None]
  - Incorrect dose administered by device [None]
